APPROVED DRUG PRODUCT: TRANDOLAPRIL
Active Ingredient: TRANDOLAPRIL
Strength: 4MG
Dosage Form/Route: TABLET;ORAL
Application: A078493 | Product #003
Applicant: SENORES PHARMACEUTICALS INC
Approved: Aug 25, 2008 | RLD: No | RS: No | Type: DISCN